FAERS Safety Report 9044167 (Version 1)
Quarter: 2013Q1

REPORT INFORMATION
  Report Type: Report from Study
  Country: US (occurrence: US)
  Receive Date: 20130130
  Receipt Date: 20130130
  Transmission Date: 20140127
  Serious: No
  Sender: FDA-Public Use
  Company Number: US-ABBOTT-12P-163-0955335-00

PATIENT
  Age: 20 Year
  Sex: Male

DRUGS (7)
  1. HUMIRA 40 MG/0.8 ML PEN [Suspect]
     Indication: CROHN^S DISEASE
     Dates: start: 20120619, end: 20120619
  2. HUMIRA 40 MG/0.8 ML PEN [Suspect]
     Dates: start: 20120703, end: 20120703
  3. HUMIRA 40 MG/0.8 ML PEN [Suspect]
  4. BUDESONIDE [Concomitant]
     Indication: CROHN^S DISEASE
     Dosage: PRESCRIBED TO TAKE IT FOR 90 DAYS IN CONJUNCTION WITH HUMIRA THEN STOPS
  5. L-GLUTAMINE [Concomitant]
     Indication: CROHN^S DISEASE
  6. MVI [Concomitant]
     Indication: PRODUCT USED FOR UNKNOWN INDICATION
  7. FISH OIL [Concomitant]
     Indication: PRODUCT USED FOR UNKNOWN INDICATION

REACTIONS (1)
  - Acne [Not Recovered/Not Resolved]
